FAERS Safety Report 5233209-8 (Version None)
Quarter: 2007Q1

REPORT INFORMATION
  Report Type: 
  Country: None (occurrence: None)
  Receive Date: 20061204
  Receipt Date: 20060801
  Transmission Date: 20070707
  Serious: No
  Sender: FDA-Public Use
  Company Number: 2006-BP-02189BP

PATIENT
  Age: 56 Year
  Sex: Male
  Weight: 108.8 kg

DRUGS (17)
  1. SPIRIVA [Suspect]
     Indication: ASTHMA
     Dosage: 18 MCG (18 MCG,1 IN 1 D),IH
     Route: 055
     Dates: start: 20051001
  2. SPIRIVA [Suspect]
  3. QVAR [Concomitant]
  4. FORADIL [Concomitant]
  5. MAXAIR [Concomitant]
  6. SINGULAIR [Concomitant]
  7. INSULIN [Concomitant]
  8. AVANDIA [Concomitant]
  9. CRESTOR [Concomitant]
  10. RANITADINE (RANITIDINE) [Concomitant]
  11. NEXIUM [Concomitant]
  12. COZAAR [Concomitant]
  13. DOXAZOSIN (DOXAZOSIN) [Concomitant]
  14. HYDROCHLOROTHIAZIDE [Concomitant]
  15. CARDURA [Concomitant]
  16. ZANTAC [Concomitant]
  17. ASTELIN [Concomitant]

REACTIONS (1)
  - TREMOR [None]
